FAERS Safety Report 20997122 (Version 2)
Quarter: 2022Q4

REPORT INFORMATION
  Report Type: Report from Study
  Country: CA (occurrence: CA)
  Receive Date: 20220623
  Receipt Date: 20221019
  Transmission Date: 20230113
  Serious: Yes (Hospitalization, Other)
  Sender: FDA-Public Use
  Company Number: CA-SAMSUNG BIOEPIS-SB-2022-02791

PATIENT
  Age: 57 Year
  Sex: Female

DRUGS (21)
  1. HADLIMA [Suspect]
     Active Substance: ADALIMUMAB-BWWD
     Indication: Crohn^s disease
     Dosage: 40 MG/0.8 ML
     Route: 065
     Dates: start: 20210814
  2. KEFLEX [Suspect]
     Active Substance: CEPHALEXIN
     Indication: Product used for unknown indication
     Dosage: UNKNOWN
     Route: 065
  3. CORTISONE ACETATE [Concomitant]
     Active Substance: CORTISONE ACETATE
     Indication: Product used for unknown indication
     Route: 065
  4. CORTISONE ACETATE [Concomitant]
     Active Substance: CORTISONE ACETATE
     Dosage: 20-30MG (BASELINE) INCREASES WHEN DEALING WITH OTHER INFECTIONS OR ISSUES
     Route: 065
  5. GRAVOL [Concomitant]
     Active Substance: DIMENHYDRINATE
     Indication: Product used for unknown indication
     Dosage: EVERY FOUR HOURS, PEN AS REQUIRED
     Route: 065
  6. LASIX [Concomitant]
     Active Substance: FUROSEMIDE
     Indication: Product used for unknown indication
     Route: 065
  7. LASIX [Concomitant]
     Active Substance: FUROSEMIDE
     Dosage: 20-40 MG DAILY
     Route: 048
  8. PANTOPRAZOLE SODIUM [Concomitant]
     Active Substance: PANTOPRAZOLE SODIUM
     Indication: Product used for unknown indication
     Route: 065
  9. ZOFRAN [Concomitant]
     Active Substance: ONDANSETRON HYDROCHLORIDE
     Indication: Product used for unknown indication
     Route: 065
  10. HYDROMORPHONE [Concomitant]
     Active Substance: HYDROMORPHONE
     Indication: Product used for unknown indication
     Dosage: 4-8MG FOR EVERY 4 HRS PRN
     Route: 048
  11. HYDROMORPHONE [Concomitant]
     Active Substance: HYDROMORPHONE
     Dosage: 4-8MG FOR EVERY 2 HRS PRN
     Route: 058
  12. HYDROMORPHONE [Concomitant]
     Active Substance: HYDROMORPHONE
     Dosage: 4 MG TO 6 MG
     Route: 048
  13. VANCOMYCIN [Concomitant]
     Active Substance: VANCOMYCIN
     Indication: Product used for unknown indication
     Dosage: 125MG BID TO QID IF ON ANTIBIOTICS
     Route: 065
  14. PANTOPRAZOLE [Concomitant]
     Active Substance: PANTOPRAZOLE
     Indication: Product used for unknown indication
     Dosage: UNKNOWN
     Route: 065
  15. CALCIUM CARBONATE [Concomitant]
     Active Substance: CALCIUM CARBONATE
     Indication: Product used for unknown indication
     Dosage: 309 MG QID
     Route: 065
  16. AMITRIPTYLINE [Concomitant]
     Active Substance: AMITRIPTYLINE
     Indication: Product used for unknown indication
     Dosage: 125 (UNIT UNKNOWN) PER ORAL AT BEDTIME
     Route: 048
  17. ONDANSETRON [Concomitant]
     Active Substance: ONDANSETRON
     Indication: Product used for unknown indication
     Dosage: 8 MG TID, ORAL DISSOLVING TABLET
     Route: 048
  18. BENADRYL [Concomitant]
     Active Substance: DIPHENHYDRAMINE HYDROCHLORIDE
     Indication: Product used for unknown indication
     Dosage: EVERY FOUR HOURS, PEN AS REQUIRED
     Route: 065
  19. VITAMINS [Concomitant]
     Active Substance: VITAMINS
     Indication: Product used for unknown indication
     Dosage: UNKNOWN, 2 GUMMIES DAILY
     Route: 065
  20. MONISTAT [Concomitant]
     Active Substance: MICONAZOLE NITRATE
     Indication: Skin disorder
     Dosage: UNKNOWN
     Route: 065
  21. MONISTAT [Concomitant]
     Active Substance: MICONAZOLE NITRATE
     Indication: Skin irritation

REACTIONS (22)
  - Pyelonephritis [Unknown]
  - Nephrolithiasis [Unknown]
  - Clostridium difficile infection [Not Recovered/Not Resolved]
  - Septic shock [Unknown]
  - Organ failure [Unknown]
  - Anaphylactic reaction [Recovering/Resolving]
  - Crohn^s disease [Unknown]
  - Feeling abnormal [Unknown]
  - Infection [Unknown]
  - Megacolon [Unknown]
  - Central nervous system lesion [Unknown]
  - Spinal deformity [Unknown]
  - Spinal fracture [Unknown]
  - Osteomyelitis [Unknown]
  - Speech disorder [Unknown]
  - Memory impairment [Unknown]
  - Impaired quality of life [Unknown]
  - Fatigue [Unknown]
  - Hypohidrosis [Unknown]
  - Alopecia universalis [Unknown]
  - Feeling abnormal [Unknown]
  - Ill-defined disorder [Unknown]

NARRATIVE: CASE EVENT DATE: 20210901
